FAERS Safety Report 5494423-X (Version None)
Quarter: 2007Q4

REPORT INFORMATION
  Report Type: 
  Country: None (occurrence: None)
  Receive Date: 20071022
  Receipt Date: 20071022
  Transmission Date: 20080405
  Serious: Yes (Other)
  Sender: FDA-Public Use
  Company Number: None

PATIENT
  Sex: Male
  Weight: 95.709 kg

DRUGS (12)
  1. NORVIR [Suspect]
     Indication: HIV TEST POSITIVE
  2. FORTOVASE GSK [Suspect]
     Indication: HIV TEST POSITIVE
  3. TRIZIVIR [Concomitant]
  4. FOSAMAX D [Concomitant]
  5. SINGULAIR [Concomitant]
  6. ZYRTEC [Concomitant]
  7. RITALIN LA [Concomitant]
  8. NORDITROPIN [Concomitant]
  9. LUNESTA [Concomitant]
  10. VISTARIL [Concomitant]
  11. ZETIA [Concomitant]
  12. GLUCOPHAGE [Concomitant]

REACTIONS (3)
  - ACUTE GRAFT VERSUS HOST DISEASE [None]
  - LIPODYSTROPHY ACQUIRED [None]
  - OSTEOPENIA [None]
